FAERS Safety Report 4331230-5 (Version None)
Quarter: 2004Q2

REPORT INFORMATION
  Report Type: 
  Country: None (occurrence: None)
  Receive Date: 20040405
  Receipt Date: 20040317
  Transmission Date: 20050107
  Serious: Yes (Other)
  Sender: FDA-Public Use
  Company Number: 200413312GDDC

PATIENT
  Age: 74 Year
  Sex: Female

DRUGS (8)
  1. KETEK [Suspect]
     Indication: PNEUMONIA
     Route: 048
     Dates: start: 20040310, end: 20040315
  2. WARFARIN SODIUM [Suspect]
     Route: 048
     Dates: end: 20040315
  3. METOPROLOL [Concomitant]
     Route: 048
  4. PROPAFENONE HYDROCHLORIDE [Concomitant]
     Indication: ARRHYTHMIA
     Route: 048
  5. GLYBURIDE [Concomitant]
  6. METFORMIN HCL [Concomitant]
  7. TRAVOPROST [Concomitant]
     Route: 031
  8. VALSARTAN W/ HYDROCHLOROTHIAZIDE [Concomitant]
     Dosage: DOSE: 160/12.5

REACTIONS (2)
  - DRUG INTERACTION [None]
  - INTERNATIONAL NORMALISED RATIO INCREASED [None]
